FAERS Safety Report 22360670 (Version 1)
Quarter: 2023Q2

REPORT INFORMATION
  Report Type: Spontaneous
  Country: US (occurrence: US)
  Receive Date: 20230524
  Receipt Date: 20230524
  Transmission Date: 20230721
  Serious: Yes (Life-Threatening, Hospitalization, Other)
  Sender: FDA-Public Use
  Company Number: US-drreddys-SPO/USA/23/0165286

PATIENT
  Age: 41 Year
  Sex: Male

DRUGS (2)
  1. FLUCONAZOLE [Suspect]
     Active Substance: FLUCONAZOLE
     Indication: Vascular device infection
  2. CISPLATIN [Concomitant]
     Active Substance: CISPLATIN
     Indication: Mesothelioma

REACTIONS (2)
  - Hyponatraemia [Recovered/Resolved]
  - Product use in unapproved indication [Unknown]
